FAERS Safety Report 14363133 (Version 1)
Quarter: 2018Q1

REPORT INFORMATION
  Report Type: Spontaneous
  Country: TW (occurrence: TW)
  Receive Date: 20180108
  Receipt Date: 20180108
  Transmission Date: 20180509
  Serious: Yes (Death, Life-Threatening)
  Sender: FDA-Public Use
  Company Number: TW-CORDEN PHARMA LATINA S.P.A.-TW-2017COR000249

PATIENT
  Sex: Female

DRUGS (1)
  1. CARBOPLATIN. [Suspect]
     Active Substance: CARBOPLATIN
     Indication: GENITAL NEOPLASM MALIGNANT FEMALE
     Dosage: CUMULATIVE DOSE OF APPROXIMATELY 14,000MG
     Route: 065

REACTIONS (2)
  - Hypersensitivity [Fatal]
  - Respiratory failure [Fatal]
